FAERS Safety Report 9095573 (Version 1)
Quarter: 2013Q1

REPORT INFORMATION
  Report Type: Spontaneous
  Country: DK (occurrence: None)
  Receive Date: 20130123
  Receipt Date: 20130123
  Transmission Date: 20140127
  Serious: Yes (Hospitalization)
  Sender: FDA-Public Use
  Company Number: 2013MA000536

PATIENT
  Age: 71 Year
  Sex: Male

DRUGS (1)
  1. ACYCLOVIR ORAL SUSPENSION, 200 MG/5 ML (ALPHARMA) (ACICLOVIR) [Suspect]
     Indication: HERPES SIMPLEX
     Route: 048
     Dates: start: 20121227, end: 20121230

REACTIONS (1)
  - Abdominal pain upper [None]
